FAERS Safety Report 9026723 (Version 2)
Quarter: 2013Q1

REPORT INFORMATION
  Report Type: Spontaneous
  Country: US (occurrence: None)
  Receive Date: 20130108
  Receipt Date: 20130130
  Transmission Date: 20140127
  Serious: Yes (Hospitalization)
  Sender: FDA-Public Use
  Company Number: 2013034358

PATIENT
  Sex: Female
  Weight: 20.41 kg

DRUGS (8)
  1. HIZENTRA (IMMUNOGLOBULIN HUMAN NORMAL) [Suspect]
     Indication: IMMUNODEFICIENCY
     Dosage: 3 G 1X/WEEK, IN 1-2 SITES OVER 0.5-1 HOUR, WEEKLY SUBCUTANEOUS
     Route: 058
  2. SINGULAIR [Concomitant]
  3. NASONEX (MOMETASONE FUROATE) [Concomitant]
  4. FLOVENT (FLUTICASONE PROPIONATE) [Concomitant]
  5. PREVACID (LANSOPRAZOLE) [Concomitant]
  6. LIDOCAINE/PRILOCAINE (EMLA /00675501/) [Concomitant]
  7. EPI-PEN JR (EPINEPHRINE HYDROCHLORIDE) [Concomitant]
  8. CHILDRENS TYLENOL (PARACETAMOL) [Concomitant]

REACTIONS (1)
  - Gastric disorder [None]
